FAERS Safety Report 8811548 (Version 4)
Quarter: 2013Q1

REPORT INFORMATION
  Report Type: Spontaneous
  Country: CA (occurrence: CA)
  Receive Date: 20120927
  Receipt Date: 20130225
  Transmission Date: 20140127
  Serious: Yes (Other)
  Sender: FDA-Public Use
  Company Number: CA-PFIZER INC-2012236262

PATIENT
  Age: 57 Year
  Sex: Female
  Weight: 79.5 kg

DRUGS (3)
  1. EFFEXOR XR [Suspect]
     Indication: DEPRESSION
     Dosage: 150 MG, 1X/DAY
     Route: 048
     Dates: start: 201105, end: 201204
  2. EFFEXOR XR [Interacting]
     Dosage: 225 MG, 1X/DAY
     Route: 048
     Dates: start: 201204
  3. DOMPERIDONE [Interacting]
     Indication: GASTROOESOPHAGEAL REFLUX DISEASE
     Dosage: UNK, OCCASIONALLY

REACTIONS (7)
  - Clostridium difficile infection [Recovered/Resolved]
  - Salmonellosis [Recovered/Resolved]
  - Gastrooesophageal reflux disease [Not Recovered/Not Resolved]
  - Drug interaction [Recovered/Resolved]
  - Medication residue present [Unknown]
  - Withdrawal syndrome [Unknown]
  - Drug ineffective [Recovered/Resolved]
